FAERS Safety Report 8459166-9 (Version None)
Quarter: 2012Q2

REPORT INFORMATION
  Report Type: 
  Country: None (occurrence: None)
  Receive Date: 20120622
  Receipt Date: 20120612
  Transmission Date: 20120825
  Serious: Yes (Other)
  Sender: FDA-Public Use
  Company Number: JP-VERTEX PHARMACEUTICALS INC.-AE-2012-008906

PATIENT
  Age: 68 Year
  Sex: Female

DRUGS (8)
  1. TELAVIC (TELAPREVIR) [Suspect]
     Route: 048
     Dates: start: 20120524
  2. RIBAVIRIN [Concomitant]
     Indication: HEPATITIS C
     Route: 048
     Dates: start: 20120425, end: 20120606
  3. ALLOPURINOL [Concomitant]
     Route: 048
     Dates: start: 20120509
  4. COTRIM [Concomitant]
     Route: 048
     Dates: start: 20120530
  5. PEGINTERFERON ALFA-2B [Concomitant]
     Indication: HEPATITIS C
     Route: 058
     Dates: start: 20120425
  6. TELAVIC (TELAPREVIR) [Suspect]
     Indication: HEPATITIS C
     Route: 048
     Dates: start: 20120425, end: 20120523
  7. RIBAVIRIN [Concomitant]
     Route: 048
     Dates: start: 20120607
  8. LEVOFLOXACIN [Concomitant]
     Route: 048
     Dates: start: 20120502

REACTIONS (3)
  - WHITE BLOOD CELL COUNT DECREASED [None]
  - DECREASED APPETITE [None]
  - ANAEMIA [None]
